FAERS Safety Report 6305880-0 (Version None)
Quarter: 2009Q3

REPORT INFORMATION
  Report Type: 
  Country: None (occurrence: None)
  Receive Date: 20090812
  Receipt Date: 20090731
  Transmission Date: 20100115
  Serious: Yes (Death, Hospitalization)
  Sender: FDA-Public Use
  Company Number: US-MYLANLABS-2009S1013737

PATIENT
  Age: 53 Year
  Sex: Male

DRUGS (12)
  1. CLOZAPINE [Suspect]
     Indication: SCHIZOAFFECTIVE DISORDER
     Route: 048
     Dates: start: 20021201, end: 20090101
  2. RESTORIL [Concomitant]
  3. GLUCOPHAGE [Concomitant]
  4. MARINOL [Concomitant]
  5. MULTI-VITAMIN [Concomitant]
  6. DEPAKOTE [Concomitant]
  7. COMPAZINE [Concomitant]
  8. FERROUS SULFATE TAB [Concomitant]
  9. FOLIC ACID [Concomitant]
  10. ATENOLOL [Concomitant]
  11. LEXAPRO [Concomitant]
  12. PERCOCET [Concomitant]

REACTIONS (1)
  - WOUND SEPSIS [None]
